FAERS Safety Report 11778726 (Version 1)
Quarter: 2015Q4

REPORT INFORMATION
  Report Type: Spontaneous
  Country: CA (occurrence: CA)
  Receive Date: 20151125
  Receipt Date: 20151125
  Transmission Date: 20160304
  Serious: Yes (Other)
  Sender: FDA-Public Use
  Company Number: PHHY2015CA149755

PATIENT
  Sex: Female

DRUGS (5)
  1. SANDOSTATIN [Suspect]
     Active Substance: OCTREOTIDE ACETATE
     Dosage: 2 X 50 UG
     Route: 065
     Dates: start: 20150627
  2. SANDOSTATIN [Suspect]
     Active Substance: OCTREOTIDE ACETATE
     Dosage: 2 X 150 UG
     Route: 065
     Dates: start: 20150710
  3. SANDOSTATIN [Suspect]
     Active Substance: OCTREOTIDE ACETATE
     Indication: NEUROENDOCRINE TUMOUR
     Dosage: 2 X 25 UG
     Route: 065
     Dates: start: 20150624
  4. SANDOSTATIN LAR DEPOT [Suspect]
     Active Substance: OCTREOTIDE ACETATE
     Indication: NEUROENDOCRINE TUMOUR
     Route: 065
     Dates: start: 20141124
  5. SANDOSTATIN [Suspect]
     Active Substance: OCTREOTIDE ACETATE
     Dosage: 2 X 100 UG
     Route: 065
     Dates: start: 20150630

REACTIONS (12)
  - Glucagonoma [Unknown]
  - Eczema [Unknown]
  - Fall [Unknown]
  - Vulvovaginal pruritus [Recovered/Resolved]
  - Scratch [Unknown]
  - Neoplasm skin [Unknown]
  - Herpes zoster [Unknown]
  - Dermatitis [Unknown]
  - Skin irritation [Unknown]
  - Skin haemorrhage [Unknown]
  - Necrolytic migratory erythema [Unknown]
  - Urticaria [Unknown]

NARRATIVE: CASE EVENT DATE: 2014
